FAERS Safety Report 9540932 (Version 3)
Quarter: 2013Q3

REPORT INFORMATION
  Report Type: Report from Study
  Country: CA (occurrence: CA)
  Receive Date: 20130921
  Receipt Date: 20130925
  Transmission Date: 20140515
  Serious: Yes (Hospitalization)
  Sender: FDA-Public Use
  Company Number: CA-ROCHE-1249459

PATIENT
  Age: 61 Year
  Sex: Female

DRUGS (3)
  1. ZELBORAF [Suspect]
     Indication: BREAST CANCER METASTATIC
     Route: 048
     Dates: start: 20130524, end: 201309
  2. ZELBORAF [Suspect]
     Route: 048
     Dates: start: 20130715
  3. LYRICA [Concomitant]

REACTIONS (4)
  - Disease progression [Not Recovered/Not Resolved]
  - Diarrhoea [Not Recovered/Not Resolved]
  - Fluid retention [Not Recovered/Not Resolved]
  - Medication error [Unknown]
